FAERS Safety Report 7412834-X (Version None)
Quarter: 2011Q2

REPORT INFORMATION
  Report Type: 
  Country: None (occurrence: None)
  Receive Date: 20110413
  Receipt Date: 20110405
  Transmission Date: 20111010
  Serious: Yes (Other)
  Sender: FDA-Public Use
  Company Number: B0711754A

PATIENT
  Sex: Male

DRUGS (1)
  1. PAXIL [Suspect]
     Route: 048
     Dates: end: 20101101

REACTIONS (6)
  - MALAISE [None]
  - ANAEMIA [None]
  - DIZZINESS POSTURAL [None]
  - MOTION SICKNESS [None]
  - DIZZINESS [None]
  - DRUG WITHDRAWAL SYNDROME [None]
